FAERS Safety Report 10314937 (Version 1)
Quarter: 2014Q3

REPORT INFORMATION
  Report Type: Report from Study
  Country: SK (occurrence: SK)
  Receive Date: 20140718
  Receipt Date: 20140718
  Transmission Date: 20150326
  Serious: Yes (Hospitalization)
  Sender: FDA-Public Use
  Company Number: SK-ABBVIE-14P-260-1258237-00

PATIENT
  Age: 33 Year
  Sex: Male

DRUGS (8)
  1. MESALAMINE. [Concomitant]
     Active Substance: MESALAMINE
     Indication: CROHN^S DISEASE
     Dates: start: 20081116
  2. HUMIRA [Suspect]
     Active Substance: ADALIMUMAB
     Dates: start: 20080616, end: 20100419
  3. PREDNISONE. [Concomitant]
     Active Substance: PREDNISONE
     Indication: CROHN^S DISEASE
     Dates: start: 20080616, end: 20081019
  4. METRONIDAZOLUM [Concomitant]
     Indication: CROHN^S DISEASE
     Dates: start: 20091228, end: 20100127
  5. HUMIRA [Suspect]
     Active Substance: ADALIMUMAB
     Indication: CROHN^S DISEASE
     Dosage: BASELINE
     Route: 058
     Dates: start: 20071214, end: 20071214
  6. AZATHIOPRINUM [Concomitant]
     Indication: CROHN^S DISEASE
     Dates: start: 20071010
  7. HUMIRA [Suspect]
     Active Substance: ADALIMUMAB
     Dosage: WEEK 2
  8. CIPROFLOXACIN. [Concomitant]
     Active Substance: CIPROFLOXACIN
     Indication: CROHN^S DISEASE
     Dates: start: 20081128, end: 20090405

REACTIONS (1)
  - Anal fistula [Unknown]

NARRATIVE: CASE EVENT DATE: 20091222
